FAERS Safety Report 8833243 (Version 1)
Quarter: 2012Q4

REPORT INFORMATION
  Report Type: 
  Country: DE (occurrence: DE)
  Receive Date: 20121010
  Receipt Date: 20121010
  Transmission Date: 20130627
  Serious: No
  Sender: FDA-Public Use
  Company Number: PHHY2012DE089167

PATIENT
  Sex: Male

DRUGS (1)
  1. LAMISIL [Suspect]
     Dosage: 250 mg, once daily followed by once weekly orally for unknown indication
     Route: 048
     Dates: start: 2012

REACTIONS (1)
  - Drug administration error [Unknown]
